FAERS Safety Report 6831358-1 (Version None)
Quarter: 2010Q3

REPORT INFORMATION
  Report Type: 
  Country: None (occurrence: None)
  Receive Date: 20100712
  Receipt Date: 20100706
  Transmission Date: 20110219
  Serious: Yes (Other)
  Sender: FDA-Public Use
  Company Number: US-PFIZER INC-2009291581

PATIENT
  Sex: Male
  Weight: 98.9 kg

DRUGS (4)
  1. SUTENT [Suspect]
     Indication: METASTATIC RENAL CELL CARCINOMA
     Dosage: 50 MG, 1X/DAY 4-2 CYCLE
     Route: 048
     Dates: start: 20090901
  2. SUTENT [Suspect]
     Indication: RENAL CELL CARCINOMA
  3. SUTENT [Suspect]
     Indication: METASTASES TO LIVER
  4. SUTENT [Suspect]
     Indication: METASTASES TO LUNG

REACTIONS (9)
  - BLOOD PRESSURE INCREASED [None]
  - CHROMATURIA [None]
  - CONTUSION [None]
  - HAEMANGIOMA [None]
  - HAEMOPTYSIS [None]
  - HYPOTHYROIDISM [None]
  - NEOPLASM [None]
  - NEOPLASM MALIGNANT [None]
  - SKIN EXFOLIATION [None]
